FAERS Safety Report 21787433 (Version 1)
Quarter: 2022Q4

REPORT INFORMATION
  Report Type: Spontaneous
  Country: FR (occurrence: FR)
  Receive Date: 20221228
  Receipt Date: 20221228
  Transmission Date: 20230112
  Serious: Yes (Hospitalization)
  Sender: FDA-Public Use
  Company Number: None

PATIENT
  Age: 82 Year
  Sex: Female
  Weight: 58 kg

DRUGS (5)
  1. HALDOL [Interacting]
     Active Substance: HALOPERIDOL
     Indication: Psychotic disorder
     Route: 048
     Dates: start: 202105, end: 20221128
  2. LOXAPINE SUCCINATE [Interacting]
     Active Substance: LOXAPINE SUCCINATE
     Indication: Anxiety
     Route: 048
     Dates: start: 20221108, end: 20221123
  3. CELIPROLOL [Concomitant]
     Active Substance: CELIPROLOL
     Route: 048
  4. LORAZEPAM [Concomitant]
     Active Substance: LORAZEPAM
     Route: 048
  5. MIRTAZAPINE [Concomitant]
     Active Substance: MIRTAZAPINE
     Route: 048
     Dates: start: 202105

REACTIONS (2)
  - Drug interaction [Recovering/Resolving]
  - Extrapyramidal disorder [Recovering/Resolving]

NARRATIVE: CASE EVENT DATE: 20221123
